FAERS Safety Report 4749262-1 (Version None)
Quarter: 2005Q3

REPORT INFORMATION
  Report Type: 
  Country: None (occurrence: None)
  Receive Date: 20050812
  Receipt Date: 20050504
  Transmission Date: 20060218
  Serious: Yes (Other)
  Sender: FDA-Public Use
  Company Number: 403930

PATIENT
  Age: 23 Year
  Sex: Female
  Weight: 71.7 kg

DRUGS (2)
  1. PEGASYS [Suspect]
     Indication: HEPATITIS C VIRUS
     Dosage: 180 MCG 1 PER WEEK SUBCUTANEOUS
     Route: 058
     Dates: start: 20041023
  2. COPEGUS [Suspect]
     Indication: HEPATITIS C VIRUS
     Dosage: 200 MG 6 PER DAY ORAL
     Route: 048
     Dates: start: 20041023

REACTIONS (8)
  - ANAEMIA [None]
  - BLOOD THYROID STIMULATING HORMONE INCREASED [None]
  - DEPRESSION [None]
  - FATIGUE [None]
  - LOCAL SWELLING [None]
  - MYALGIA [None]
  - NEUTROPENIA [None]
  - WEIGHT INCREASED [None]
